FAERS Safety Report 6572921-5 (Version None)
Quarter: 2010Q1

REPORT INFORMATION
  Report Type: 
  Country: None (occurrence: None)
  Receive Date: 20100208
  Receipt Date: 20100129
  Transmission Date: 20100710
  Serious: Yes (Death)
  Sender: FDA-Public Use
  Company Number: FR-BIOGENIDEC-2009BI034085

PATIENT
  Age: 45 Year
  Sex: Female

DRUGS (12)
  1. TYSABRI [Suspect]
     Indication: RELAPSING-REMITTING MULTIPLE SCLEROSIS
     Route: 042
     Dates: start: 20070606, end: 20091002
  2. NEXIUM [Concomitant]
     Indication: GASTRITIS
     Route: 048
     Dates: start: 20080601, end: 20091001
  3. DEPAKINE CHRONO [Concomitant]
     Indication: EPILEPSY
     Dates: start: 20070108, end: 20091001
  4. NEURONTIN [Concomitant]
     Indication: PAIN IN EXTREMITY
     Dates: start: 20061001, end: 20091001
  5. NEURONTIN [Concomitant]
     Indication: EPILEPSY
     Dates: start: 20061001, end: 20091001
  6. RIVOTRIL [Concomitant]
     Indication: PAIN IN EXTREMITY
     Dates: start: 20070101, end: 20091001
  7. DITROPAN [Concomitant]
     Indication: URGE INCONTINENCE
     Dates: start: 20090605, end: 20091001
  8. SEROPLEX [Concomitant]
     Indication: DEPRESSION
     Route: 048
     Dates: end: 20091001
  9. PRITOR [Concomitant]
     Indication: ESSENTIAL HYPERTENSION
     Dates: start: 20080601, end: 20081001
  10. STILNOX [Concomitant]
     Indication: ANXIETY
     Route: 048
     Dates: start: 20080801, end: 20081001
  11. HYPERIUM [Concomitant]
     Indication: ESSENTIAL HYPERTENSION
     Dates: end: 20091001
  12. CANDESARTAN CILEXETIL/HYDROCHLOROTHIAZIDE (ATACAND HCT) [Concomitant]
     Indication: ESSENTIAL HYPERTENSION
     Dates: end: 20091001

REACTIONS (5)
  - ALCOHOL POISONING [None]
  - GASTROENTERITIS VIRAL [None]
  - MULTIPLE SCLEROSIS RELAPSE [None]
  - NAUSEA [None]
  - OVERDOSE [None]
